FAERS Safety Report 9707118 (Version 1)
Quarter: 2013Q4

REPORT INFORMATION
  Report Type: Spontaneous
  Country: US (occurrence: US)
  Receive Date: 20131125
  Receipt Date: 20131125
  Transmission Date: 20140711
  Serious: Yes (Disabling)
  Sender: FDA-Public Use
  Company Number: US-SA-2013SA121468

PATIENT
  Age: 50 Year
  Sex: Male

DRUGS (2)
  1. LANTUS SOLOSTAR [Suspect]
     Indication: TYPE 2 DIABETES MELLITUS
     Dosage: TAKEN FROM: 1 YEAR AGO. DOSE:30 UNIT(S)
     Route: 051
  2. SOLOSTAR [Concomitant]

REACTIONS (3)
  - Mobility decreased [Unknown]
  - Adverse event [Unknown]
  - Expired drug administered [Unknown]
